FAERS Safety Report 8062123-8 (Version None)
Quarter: 2012Q1

REPORT INFORMATION
  Report Type: 
  Country: None (occurrence: None)
  Receive Date: 20120123
  Receipt Date: 20120110
  Transmission Date: 20120608
  Serious: Yes (Hospitalization, Other)
  Sender: FDA-Public Use
  Company Number: US-ELI_LILLY_AND_COMPANY-US201108004187

PATIENT
  Sex: Female

DRUGS (19)
  1. TRICOR [Concomitant]
  2. OMEPRAZOLE [Concomitant]
  3. FORTEO [Suspect]
     Dosage: 20 UG, QD
     Route: 065
  4. ALBUTEROL SULFATE [Concomitant]
  5. HYOSCYAMINE SULFATE [Concomitant]
  6. IMDUR [Concomitant]
  7. CYMBALTA [Concomitant]
  8. FERROUS SULFATE TAB [Concomitant]
  9. WARFARIN SODIUM [Concomitant]
  10. FORTEO [Suspect]
     Dosage: 20 UG, QD
     Dates: end: 20111201
  11. INSULIN [Concomitant]
     Indication: DIABETES MELLITUS
  12. TRAZODONE HCL [Concomitant]
  13. CARVEDILOL [Concomitant]
  14. NOVOLOG [Concomitant]
  15. FORTEO [Suspect]
     Indication: OSTEOPOROSIS
     Dosage: 20 UG, QD
     Route: 065
     Dates: start: 20110401
  16. CRESTOR [Concomitant]
  17. BUMEX [Concomitant]
  18. LOVAZA [Concomitant]
  19. LANTUS [Concomitant]

REACTIONS (18)
  - ASTHENIA [None]
  - BLOOD CALCIUM INCREASED [None]
  - FALL [None]
  - POLYDIPSIA [None]
  - OEDEMA PERIPHERAL [None]
  - ABDOMINAL DISTENSION [None]
  - TENDON DISORDER [None]
  - THIRST [None]
  - BLOOD POTASSIUM ABNORMAL [None]
  - HAEMOGLOBIN DECREASED [None]
  - FRACTURE [None]
  - MUSCULAR WEAKNESS [None]
  - CARDIAC FAILURE CONGESTIVE [None]
  - DEHYDRATION [None]
  - LOWER LIMB FRACTURE [None]
  - ANKLE FRACTURE [None]
  - DYSPNOEA [None]
  - RENAL DISORDER [None]
